FAERS Safety Report 7295199-6 (Version None)
Quarter: 2011Q1

REPORT INFORMATION
  Report Type: 
  Country: None (occurrence: None)
  Receive Date: 20110216
  Receipt Date: 20101203
  Transmission Date: 20110831
  Serious: No
  Sender: FDA-Public Use
  Company Number: A0897660A

PATIENT
  Age: 68 Year
  Sex: Female

DRUGS (6)
  1. VOTRIENT [Suspect]
     Dosage: 800MG PER DAY
     Route: 048
     Dates: start: 20101110
  2. SIMVASTATIN [Concomitant]
  3. GLUCOPHAGE XR [Concomitant]
  4. ALENDRONATE SODIUM [Concomitant]
  5. AMARYL [Concomitant]
  6. PAROXETINE HCL [Concomitant]

REACTIONS (1)
  - FEELING ABNORMAL [None]
